FAERS Safety Report 7477749-X (Version None)
Quarter: 2011Q2

REPORT INFORMATION
  Report Type: 
  Country: None (occurrence: None)
  Receive Date: 20110511
  Receipt Date: 20110511
  Transmission Date: 20111010
  Serious: No
  Sender: FDA-Public Use
  Company Number: None

PATIENT
  Sex: Female
  Weight: 55 kg

DRUGS (5)
  1. ACETAMINOPHEN [Concomitant]
  2. CENTRUM SILVER [Concomitant]
  3. TUMS SMOOTHIES [Concomitant]
  4. CARBOPLATIN [Suspect]
     Dosage: 444 MG
  5. TAXOL [Suspect]
     Dosage: 257 MG

REACTIONS (1)
  - NEUTROPHIL COUNT DECREASED [None]
